FAERS Safety Report 17477098 (Version 2)
Quarter: 2020Q2

REPORT INFORMATION
  Report Type: Spontaneous
  Country: AU (occurrence: AU)
  Receive Date: 20200229
  Receipt Date: 20200406
  Transmission Date: 20200713
  Serious: Yes (Death, Hospitalization, Other)
  Sender: FDA-Public Use
  Company Number: AU-009507513-1908AUS002941

PATIENT
  Sex: Female
  Weight: 43 kg

DRUGS (1)
  1. KEYTRUDA [Suspect]
     Active Substance: PEMBROLIZUMAB
     Indication: OESOPHAGEAL CARCINOMA
     Dosage: 20 TREATMENTS
     Dates: start: 20190315

REACTIONS (12)
  - Coma [Unknown]
  - Asthenia [Unknown]
  - Lung neoplasm malignant [Unknown]
  - Wheezing [Unknown]
  - Aphonia [Unknown]
  - Cough [Unknown]
  - Dyspnoea [Unknown]
  - Immune system disorder [Unknown]
  - Death [Fatal]
  - Insomnia [Unknown]
  - Pneumonia [Unknown]
  - Product use in unapproved indication [Unknown]

NARRATIVE: CASE EVENT DATE: 20190315
